FAERS Safety Report 16980045 (Version 1)
Quarter: 2019Q4

REPORT INFORMATION
  Report Type: Report from Study
  Country: US (occurrence: US)
  Receive Date: 20191031
  Receipt Date: 20191031
  Transmission Date: 20200122
  Serious: Yes (Hospitalization, Other)
  Sender: FDA-Public Use
  Company Number: NVSC2019US020589

PATIENT
  Sex: Female

DRUGS (1)
  1. MAYZENT [Suspect]
     Active Substance: SIPONIMOD
     Indication: MULTIPLE SCLEROSIS
     Dosage: UNK UNK, QD
     Route: 065

REACTIONS (10)
  - Multiple sclerosis [Unknown]
  - Urinary tract infection [Unknown]
  - Hypoaesthesia [Unknown]
  - Gait disturbance [Unknown]
  - Conjunctivitis [Unknown]
  - Dizziness [Unknown]
  - Coordination abnormal [Unknown]
  - Hallucination [Unknown]
  - Product dose omission [Unknown]
  - Inappropriate schedule of product administration [Unknown]
